FAERS Safety Report 7846569-6 (Version None)
Quarter: 2011Q4

REPORT INFORMATION
  Report Type: 
  Country: None (occurrence: None)
  Receive Date: 20111025
  Receipt Date: 20111010
  Transmission Date: 20120403
  Serious: Yes (Life-Threatening, Hospitalization, Other)
  Sender: FDA-Public Use
  Company Number: US-BAXTER-2009BH011000

PATIENT
  Age: 45 Year
  Sex: Male
  Weight: 102 kg

DRUGS (13)
  1. HEPARIN SODIUM INJECTION [Suspect]
     Indication: CORONARY ARTERY BYPASS
     Route: 042
     Dates: start: 20080124
  2. HEPARIN SODIUM INJECTION [Suspect]
     Route: 040
     Dates: start: 20080124, end: 20080124
  3. HEPARIN SODIUM INJECTION [Suspect]
     Route: 040
     Dates: start: 20080131
  4. ALTACE [Concomitant]
     Indication: PRODUCT USED FOR UNKNOWN INDICATION
     Route: 065
  5. HEPARIN SODIUM 1,000 UNITS AND SODIUM CHLORIDE 0.9% [Suspect]
     Indication: CORONARY ARTERY BYPASS
     Route: 041
     Dates: start: 20080124, end: 20080124
  6. TYLENOL-500 [Concomitant]
     Indication: PRODUCT USED FOR UNKNOWN INDICATION
     Route: 065
  7. POTASSIUM CHLORIDE [Concomitant]
     Indication: PRODUCT USED FOR UNKNOWN INDICATION
     Route: 065
  8. PERCOCET [Concomitant]
     Indication: PRODUCT USED FOR UNKNOWN INDICATION
     Route: 065
  9. PROTONIX [Concomitant]
     Indication: PRODUCT USED FOR UNKNOWN INDICATION
     Route: 065
  10. HEPARIN SODIUM 1,000 UNITS AND SODIUM CHLORIDE 0.9% [Suspect]
     Route: 041
     Dates: start: 20080131, end: 20080204
  11. LASIX [Concomitant]
     Indication: PRODUCT USED FOR UNKNOWN INDICATION
     Route: 065
  12. HEPARIN SODIUM INJECTION [Suspect]
     Route: 058
     Dates: end: 20080130
  13. COREG [Concomitant]
     Indication: PRODUCT USED FOR UNKNOWN INDICATION
     Route: 065

REACTIONS (16)
  - ATRIAL FIBRILLATION [None]
  - PNEUMONIA [None]
  - ANAEMIA [None]
  - CARDIOGENIC SHOCK [None]
  - ACUTE RESPIRATORY FAILURE [None]
  - RENAL FAILURE ACUTE [None]
  - NONSPECIFIC REACTION [None]
  - VENTRICULAR TACHYCARDIA [None]
  - HYPOTENSION [None]
  - SEPSIS [None]
  - DRUG HYPERSENSITIVITY [None]
  - ATRIAL FLUTTER [None]
  - HYPERGLYCAEMIA [None]
  - INJECTION SITE INFECTION [None]
  - MALNUTRITION [None]
  - HEPARIN-INDUCED THROMBOCYTOPENIA [None]
